FAERS Safety Report 4530799-5 (Version None)
Quarter: 2004Q4

REPORT INFORMATION
  Report Type: 
  Country: None (occurrence: None)
  Receive Date: 20041216
  Receipt Date: 20041125
  Transmission Date: 20050328
  Serious: Yes (Life-Threatening, Hospitalization)
  Sender: FDA-Public Use
  Company Number: DE_041114783

PATIENT
  Sex: Male
  Weight: 90 kg

DRUGS (3)
  1. ZYPREXA [Suspect]
     Dosage: 35 MG DAY
     Dates: end: 20040901
  2. DIAZEPAM [Concomitant]
  3. POLAMIDON (METHADONE HYDROCHLORIDE) [Concomitant]

REACTIONS (9)
  - COMA [None]
  - DRUG INEFFECTIVE [None]
  - NEUROLEPTIC MALIGNANT SYNDROME [None]
  - PRESCRIBED OVERDOSE [None]
  - PULMONARY CONGESTION [None]
  - PYREXIA [None]
  - RESPIRATORY FAILURE [None]
  - RHABDOMYOLYSIS [None]
  - SHOCK [None]
